FAERS Safety Report 8900077 (Version 1)
Quarter: 2012Q4

REPORT INFORMATION
  Report Type: 
  Country: US (occurrence: US)
  Receive Date: 20121108
  Receipt Date: 20121108
  Transmission Date: 20130627
  Serious: No
  Sender: FDA-Public Use
  Company Number: US-AMGEN-USASP2012012330

PATIENT
  Age: 47 Year
  Sex: Male
  Weight: 63.49 kg

DRUGS (2)
  1. ENBREL [Suspect]
     Indication: PRODUCT USED FOR UNKNOWN INDICATION
     Dosage: 50 mg, qwk
  2. ORACEA [Concomitant]
     Dosage: 40 mg, UNK

REACTIONS (2)
  - Nasal cyst [Recovering/Resolving]
  - Localised infection [Recovering/Resolving]
